FAERS Safety Report 21253578 (Version 2)
Quarter: 2022Q4

REPORT INFORMATION
  Report Type: Spontaneous
  Country: US (occurrence: None)
  Receive Date: 20220825
  Receipt Date: 20221007
  Transmission Date: 20230113
  Serious: No
  Sender: FDA-Public Use
  Company Number: 2022A289484

PATIENT
  Age: 22861 Day
  Sex: Male
  Weight: 72.1 kg

DRUGS (1)
  1. BEVESPI AEROSPHERE [Suspect]
     Active Substance: FORMOTEROL FUMARATE\GLYCOPYRROLATE
     Indication: Chronic obstructive pulmonary disease
     Dosage: 9/ 4.8 MCG, 2 INHALATIONS, 2 TIMES A DAY,
     Route: 055
     Dates: start: 2020

REACTIONS (4)
  - Dyspnoea [Not Recovered/Not Resolved]
  - Device use issue [Unknown]
  - Drug dose omission by device [Unknown]
  - Device delivery system issue [Unknown]

NARRATIVE: CASE EVENT DATE: 20220815
